FAERS Safety Report 7620182-8 (Version None)
Quarter: 2011Q3

REPORT INFORMATION
  Report Type: 
  Country: None (occurrence: None)
  Receive Date: 20110719
  Receipt Date: 20110705
  Transmission Date: 20111222
  Serious: Yes (Other)
  Sender: FDA-Public Use
  Company Number: PHHY2011CA46650

PATIENT
  Sex: Female

DRUGS (13)
  1. NORVASC [Concomitant]
  2. ZOLEDRONOC ACID [Suspect]
     Indication: OSTEOPOROSIS
     Dosage: 5 MG, UNK
     Route: 042
     Dates: start: 20110418
  3. VITALUX [Concomitant]
  4. VITAMIN D [Concomitant]
  5. ATACAND HCT [Concomitant]
  6. CALCITONIN SALMON [Concomitant]
  7. MAGNESIUM [Concomitant]
  8. ASPIRIN [Concomitant]
  9. HYDROXYUREA [Concomitant]
  10. CALCIUM CARBONATE [Concomitant]
  11. RABEPRAZOLE SODIUM [Concomitant]
  12. ATENOLOL [Concomitant]
  13. DOCUSATE [Concomitant]

REACTIONS (14)
  - CHEST PAIN [None]
  - HYPERTENSION [None]
  - ASTHENIA [None]
  - COUGH [None]
  - SYNCOPE [None]
  - DIARRHOEA [None]
  - CONFUSIONAL STATE [None]
  - AMNESIA [None]
  - CONTUSION [None]
  - SNEEZING [None]
  - FACE INJURY [None]
  - LOSS OF CONSCIOUSNESS [None]
  - DEVICE BREAKAGE [None]
  - FALL [None]
